FAERS Safety Report 13143029 (Version 3)
Quarter: 2017Q2

REPORT INFORMATION
  Report Type: Spontaneous
  Country: FR (occurrence: FR)
  Receive Date: 20170123
  Receipt Date: 20170427
  Transmission Date: 20170830
  Serious: Yes (Death, Hospitalization, Other)
  Sender: FDA-Public Use
  Company Number: FR-AMGEN-FRASP2017008395

PATIENT
  Age: 59 Year
  Sex: Male
  Weight: 62 kg

DRUGS (11)
  1. CAPECITABINE MYLAN [Suspect]
     Active Substance: CAPECITABINE
     Indication: BRAIN NEOPLASM
     Dosage: UNK
     Route: 042
     Dates: start: 201609, end: 201612
  2. 5-FLUOROURACIL [Concomitant]
     Active Substance: FLUOROURACIL
     Indication: TONSILLAR NEOPLASM
     Dosage: UNK
     Dates: start: 201411, end: 201412
  3. CARBOPLATIN HOSPIRA [Suspect]
     Active Substance: CARBOPLATIN
     Indication: BRAIN NEOPLASM
     Dosage: UNK (3 MONTHS)
     Route: 042
     Dates: start: 201609, end: 201612
  4. DOCETAXEL HOSPIRA [Suspect]
     Active Substance: DOCETAXEL
     Indication: BRAIN NEOPLASM
     Dosage: UNK
     Route: 065
     Dates: start: 201411, end: 201412
  5. CISPLATIN ACCORD [Suspect]
     Active Substance: CISPLATIN
     Dosage: UNK (2 MONTHS)
     Route: 042
     Dates: start: 201502, end: 201504
  6. DOCETAXEL HOSPIRA [Suspect]
     Active Substance: DOCETAXEL
     Dosage: UNK (3 MONTHS)
     Route: 042
     Dates: start: 201609, end: 201612
  7. ERBITUX [Concomitant]
     Active Substance: CETUXIMAB
     Indication: BRAIN NEOPLASM
     Dosage: UNK (CYCLE 1)
     Dates: start: 20170104
  8. CISPLATIN ACCORD [Suspect]
     Active Substance: CISPLATIN
     Indication: BRAIN NEOPLASM
     Dosage: UNK
     Route: 065
     Dates: start: 201411, end: 201412
  9. IRON [Concomitant]
     Active Substance: IRON
     Dosage: UNK
     Dates: start: 201701
  10. NEULASTA [Suspect]
     Active Substance: PEGFILGRASTIM
     Indication: BRAIN NEOPLASM
     Dosage: UNK
     Route: 065
  11. CARBOPLATIN HOSPIRA [Suspect]
     Active Substance: CARBOPLATIN
     Dosage: UNK (CYCLE 1)
     Route: 065
     Dates: start: 20170104

REACTIONS (1)
  - Acute myeloid leukaemia [Fatal]

NARRATIVE: CASE EVENT DATE: 201701
